FAERS Safety Report 8956978 (Version 1)
Quarter: 2012Q4

REPORT INFORMATION
  Report Type: Report from Study
  Country: AU (occurrence: AU)
  Receive Date: 20121210
  Receipt Date: 20121210
  Transmission Date: 20130627
  Serious: Yes (Hospitalization, Disabling, Other)
  Sender: FDA-Public Use
  Company Number: AU-ROCHE-1149010

PATIENT
  Age: 76 Year
  Sex: Female

DRUGS (10)
  1. METHOXY POLYETHYLENE GLYCOL-EPOETIN BETA [Suspect]
     Indication: NEPHROGENIC ANAEMIA
     Route: 058
     Dates: start: 20060803, end: 20121016
  2. ALLOPURINOL [Concomitant]
  3. PRAZOSIN [Concomitant]
  4. LIPITOR [Concomitant]
  5. EZETROL [Concomitant]
  6. INSULIN ASPART [Concomitant]
  7. LASIX [Concomitant]
  8. OSTELIN [Concomitant]
     Dosage: 1000 units
     Route: 065
  9. NOVOMIX [Concomitant]
     Dosage: 36 units
     Route: 065
  10. NOVORAPID [Concomitant]

REACTIONS (9)
  - Melaena [Unknown]
  - Diverticulum intestinal haemorrhagic [Unknown]
  - Hyperkalaemia [Unknown]
  - Infusion [Unknown]
  - Cardiac failure congestive [Unknown]
  - Acute pulmonary oedema [Unknown]
  - Anaemia [Unknown]
  - Renal failure chronic [Unknown]
  - Malnutrition [Unknown]
